FAERS Safety Report 7094190-2 (Version None)
Quarter: 2010Q4

REPORT INFORMATION
  Report Type: 
  Country: None (occurrence: None)
  Receive Date: 20101110
  Receipt Date: 20101104
  Transmission Date: 20110411
  Serious: Yes (Hospitalization)
  Sender: FDA-Public Use
  Company Number: US-B.I. PHARMACEUTICALS,INC./RIDGEFIELD-2010-BP-12016BP

PATIENT
  Sex: Male

DRUGS (3)
  1. SPIRIVA [Suspect]
     Indication: CHRONIC OBSTRUCTIVE PULMONARY DISEASE
     Dosage: 18 MCG
     Route: 055
     Dates: start: 20040101
  2. UNKNOWN HIGH BLOOD PRESSURE MED [Concomitant]
     Indication: HYPERTENSION
     Route: 048
  3. UNKNOWN WATER PILL [Concomitant]
     Indication: HYPERTENSION
     Route: 048

REACTIONS (2)
  - BACK PAIN [None]
  - PAIN IN EXTREMITY [None]
